FAERS Safety Report 9753167 (Version 2)
Quarter: 2015Q3

REPORT INFORMATION
  Report Type: Spontaneous
  Country: US (occurrence: US)
  Receive Date: 20131213
  Receipt Date: 20150805
  Transmission Date: 20151125
  Serious: No
  Sender: FDA-Public Use
  Company Number: US-GILEAD-2010-0026783

PATIENT
  Age: 80 Year
  Sex: Female
  Weight: 66.22 kg

DRUGS (24)
  1. LEXAPRO [Concomitant]
     Active Substance: ESCITALOPRAM OXALATE
  2. COLCHICINE. [Concomitant]
     Active Substance: COLCHICINE
  3. KLONOPIN [Concomitant]
     Active Substance: CLONAZEPAM
  4. ADVAIR HFA [Concomitant]
     Active Substance: FLUTICASONE PROPIONATE\SALMETEROL XINAFOATE
  5. LETAIRIS [Suspect]
     Active Substance: AMBRISENTAN
     Indication: PULMONARY ARTERIAL HYPERTENSION
     Route: 048
     Dates: start: 20100121
  6. SYNHROID [Concomitant]
  7. TOPROL XL [Concomitant]
     Active Substance: METOPROLOL SUCCINATE
  8. ZOCOR [Concomitant]
     Active Substance: SIMVASTATIN
  9. PROBENECID. [Concomitant]
     Active Substance: PROBENECID
  10. ZETIA [Concomitant]
     Active Substance: EZETIMIBE
  11. GLUCOSAMINE [Concomitant]
     Active Substance: GLUCOSAMINE
  12. HYDROCHLOROTHIAZIDE/TRIAMTERENE [Concomitant]
  13. ASPIRIN. [Concomitant]
     Active Substance: ASPIRIN
  14. PREMARIN [Concomitant]
     Active Substance: ESTROGENS, CONJUGATED
  15. PARACETAMOL/HYDROCODONE BITARTRATE [Concomitant]
  16. TIZANADINE [Concomitant]
  17. NEURONTIN [Concomitant]
     Active Substance: GABAPENTIN
  18. OXYGEN. [Concomitant]
     Active Substance: OXYGEN
  19. CALCIUM [Concomitant]
     Active Substance: CALCIUM
  20. POTASSIUM CHLORIDE. [Concomitant]
     Active Substance: POTASSIUM CHLORIDE
  21. LORTAB [Concomitant]
     Active Substance: ACETAMINOPHEN\HYDROCODONE BITARTRATE
  22. AMBIEN [Concomitant]
     Active Substance: ZOLPIDEM TARTRATE
  23. ZYRTEC [Concomitant]
     Active Substance: CETIRIZINE HYDROCHLORIDE
  24. NEXIUM [Concomitant]
     Active Substance: ESOMEPRAZOLE MAGNESIUM

REACTIONS (4)
  - Bladder dilatation [Unknown]
  - Constipation [Unknown]
  - Headache [Unknown]
  - Peripheral swelling [Unknown]
